FAERS Safety Report 5158769-7 (Version None)
Quarter: 2006Q4

REPORT INFORMATION
  Report Type: 
  Country: None (occurrence: None)
  Receive Date: 20061128
  Receipt Date: 20061114
  Transmission Date: 20070319
  Serious: Yes (Other)
  Sender: FDA-Public Use
  Company Number: 2006GB02064

PATIENT
  Age: 64 Year
  Weight: 58 kg

DRUGS (7)
  1. ROSUVASTATIN [Suspect]
     Indication: HYPERCHOLESTEROLAEMIA
     Route: 048
     Dates: start: 20050101, end: 20060704
  2. CALCICHEW D3 [Interacting]
     Indication: OSTEOPOROSIS
     Route: 048
     Dates: start: 20051201
  3. CALCICHEW D3 [Interacting]
     Route: 048
     Dates: end: 20060704
  4. ATENOLOL [Concomitant]
     Indication: HYPERTENSION
  5. EZETIMIBE [Concomitant]
     Indication: HYPERCHOLESTEROLAEMIA
  6. LEVOTHYROXINE SODIUM [Concomitant]
     Indication: HYPERTHYROIDISM
  7. TEMAZEPAM [Concomitant]
     Indication: INSOMNIA

REACTIONS (5)
  - DRUG INTERACTION [None]
  - HYPERCALCAEMIA [None]
  - MONOPARESIS [None]
  - MYALGIA [None]
  - RED BLOOD CELL SEDIMENTATION RATE INCREASED [None]
